FAERS Safety Report 9293295 (Version 2)
Quarter: 2013Q3

REPORT INFORMATION
  Report Type: Spontaneous
  Country: CA (occurrence: CA)
  Receive Date: 20130516
  Receipt Date: 20130828
  Transmission Date: 20140515
  Serious: Yes (Other)
  Sender: FDA-Public Use
  Company Number: CA-ASTRAZENECA-2013SE14449

PATIENT
  Age: 69 Year
  Sex: Female

DRUGS (8)
  1. SYMBICORT TURBUHALER [Suspect]
     Indication: ASTHMA
     Dosage: 200/6 MCG, 2 PUFFS DAILY
     Route: 055
     Dates: start: 2007
  2. SYMBICORT TURBUHALER [Suspect]
     Indication: ASTHMA
     Dosage: 200/6 MCG, 2 PUFFS DAILY
     Route: 055
  3. VENTOLIN [Concomitant]
     Dosage: AS REQUIRED
  4. B COMPLEX [Concomitant]
  5. VITAMIN C [Concomitant]
  6. VITAMIN D [Concomitant]
  7. VITAMIN E [Concomitant]
  8. CHROMIUM [Concomitant]

REACTIONS (5)
  - Productive cough [Recovered/Resolved]
  - Respiration abnormal [Recovered/Resolved]
  - Wheezing [Unknown]
  - Drug ineffective [Unknown]
  - Asthma [Not Recovered/Not Resolved]
